FAERS Safety Report 11228664 (Version 1)
Quarter: 2015Q2

REPORT INFORMATION
  Report Type: Spontaneous
  Country: QA (occurrence: None)
  Receive Date: 20150626
  Receipt Date: 20150626
  Transmission Date: 20150821
  Serious: Yes (Life-Threatening, Hospitalization)
  Sender: FDA-Public Use
  Company Number: NSR_02147_2015

PATIENT
  Age: 28 Year
  Sex: Male

DRUGS (2)
  1. AMLODIPINE [Concomitant]
     Active Substance: AMLODIPINE BESYLATE
  2. METOCLOPRAMIDE (METOCLOPRAMIDE) [Suspect]
     Active Substance: METOCLOPRAMIDE
     Indication: VOMITING
     Dosage: (10 MG TOTAL, OVER 5 SECS INTRAVENOUS (NOT OTHERWISE SPECIFIED))
     Route: 042

REACTIONS (7)
  - Tricuspid valve incompetence [None]
  - Pyrexia [None]
  - Diarrhoea [None]
  - Loss of consciousness [None]
  - Cardiac arrest [None]
  - Hypokalaemia [None]
  - Cyanosis [None]
